FAERS Safety Report 25732852 (Version 1)
Quarter: 2025Q3

REPORT INFORMATION
  Report Type: Spontaneous
  Country: CN (occurrence: CN)
  Receive Date: 20250828
  Receipt Date: 20250828
  Transmission Date: 20251020
  Serious: Yes (Hospitalization, Other)
  Sender: BAXTER
  Company Number: None

PATIENT
  Age: 25 Year
  Sex: Male
  Weight: 59 kg

DRUGS (6)
  1. CYCLOPHOSPHAMIDE [Suspect]
     Active Substance: CYCLOPHOSPHAMIDE
     Indication: Bone cancer
     Dosage: 1.9 G, QD
     Route: 041
     Dates: start: 20250726, end: 20250726
  2. SODIUM CHLORIDE [Suspect]
     Active Substance: SODIUM CHLORIDE
     Dosage: NS 500 ML, QD WITH CYCLOPHOSPHAMIDE (D1)
     Route: 041
     Dates: start: 20250726, end: 20250726
  3. SODIUM CHLORIDE [Suspect]
     Active Substance: SODIUM CHLORIDE
     Dosage: NS 100 ML, QD WITH VINDESINE SULFATE (D1 ONCE)
     Route: 041
     Dates: start: 20250726, end: 20250726
  4. DEXTROSE [Suspect]
     Active Substance: DEXTROSE MONOHYDRATE
     Dosage: GS 500 ML, QD + LIPOSOMAL DOXORUBICIN (D1-2)
     Route: 041
     Dates: start: 20250726, end: 20250727
  5. DOXORUBICIN HYDROCHLORIDE [Suspect]
     Active Substance: DOXORUBICIN HYDROCHLORIDE
     Indication: Bone cancer
     Dosage: 20 MG, QD
     Route: 041
     Dates: start: 20250726, end: 20250727
  6. VINDESINE SULFATE [Suspect]
     Active Substance: VINDESINE SULFATE
     Indication: Bone cancer
     Dosage: 4 MG, QD
     Route: 041
     Dates: start: 20250726, end: 20250726

REACTIONS (1)
  - Myelosuppression [Recovering/Resolving]

NARRATIVE: CASE EVENT DATE: 20250807
